FAERS Safety Report 18721320 (Version 1)
Quarter: 2021Q1

REPORT INFORMATION
  Report Type: Spontaneous
  Country: US (occurrence: US)
  Receive Date: 20210109
  Receipt Date: 20210109
  Transmission Date: 20210419
  Serious: No
  Sender: FDA-Public Use
  Company Number: US-LUPIN PHARMACEUTICALS INC.-2020-11404

PATIENT
  Sex: Male

DRUGS (1)
  1. LEVETIRACETAM TABLETS USP, 750 MG [Suspect]
     Active Substance: LEVETIRACETAM
     Indication: EPILEPSY
     Dosage: 750 MILLIGRAM, BID
     Route: 048

REACTIONS (3)
  - Accidental exposure to product [Unknown]
  - Extra dose administered [Unknown]
  - No adverse event [Unknown]
